FAERS Safety Report 7652907-X (Version None)
Quarter: 2011Q3

REPORT INFORMATION
  Report Type: 
  Country: None (occurrence: None)
  Receive Date: 20110803
  Receipt Date: 20110727
  Transmission Date: 20111222
  Serious: Yes (Other)
  Sender: FDA-Public Use
  Company Number: US-BRACCO-003018

PATIENT
  Sex: Male
  Weight: 71.65 kg

DRUGS (41)
  1. MAGNEVIST [Suspect]
     Indication: NUCLEAR MAGNETIC RESONANCE IMAGING
     Dates: start: 20041218
  2. PROHANCE [Suspect]
     Indication: ANGIOGRAM
     Dosage: 0.2 MMOL/KG
     Route: 042
     Dates: start: 20040630, end: 20040630
  3. LANTUS [Concomitant]
  4. FERROUS SULFATE TAB [Concomitant]
  5. SIROLIMUS [Concomitant]
  6. SIROLIMUS [Concomitant]
  7. SEVELAMER [Concomitant]
  8. INSULIN [Concomitant]
  9. OPTIMARK [Suspect]
     Indication: NUCLEAR MAGNETIC RESONANCE IMAGING
  10. MAGNEVIST [Suspect]
     Route: 042
     Dates: start: 20010421
  11. PREDNISONE [Concomitant]
     Dates: start: 19930101
  12. MAGNESIUM OXIDE [Concomitant]
  13. EPOGEN [Concomitant]
  14. CARDURA [Concomitant]
  15. MAGNEVIST [Suspect]
     Indication: ANGIOGRAM
     Route: 042
     Dates: start: 20041108
  16. MAGNEVIST [Suspect]
     Dates: start: 20041105
  17. FOSRENOL [Concomitant]
  18. CYCLOSPORINE [Concomitant]
  19. SINEMET [Concomitant]
  20. PROCARDIA [Concomitant]
  21. CELLCEPT [Concomitant]
  22. ASPIRIN [Concomitant]
  23. METOPROLOL SUCCINATE [Concomitant]
  24. OMNISCAN [Suspect]
     Indication: NUCLEAR MAGNETIC RESONANCE IMAGING
  25. TRENTAL [Concomitant]
  26. GABAPENTIN [Concomitant]
  27. ENALAPRIL MALEATE [Concomitant]
  28. VASOTEC [Concomitant]
  29. VALGANCICLOVIR HYDROCHLORIDE (VALCYTE) [Concomitant]
  30. REGULAR INSULIN [Concomitant]
  31. TACROLIMUS [Concomitant]
  32. PROHANCE [Suspect]
     Indication: NUCLEAR MAGNETIC RESONANCE IMAGING
     Dosage: 0.2 MMOL/KG
     Route: 042
     Dates: start: 20040630, end: 20040630
  33. CONTRAST MEDIA [Suspect]
     Indication: DIAGNOSTIC PROCEDURE
     Dates: start: 20041210
  34. FERROUS SULFATE TAB [Concomitant]
  35. DOXAZOCIN [Concomitant]
  36. INSULIN ASPART [Concomitant]
  37. MULTIHANCE [Suspect]
     Indication: NUCLEAR MAGNETIC RESONANCE IMAGING
  38. SENSIPAR [Concomitant]
  39. BUMETANIDE [Concomitant]
  40. COUMADIN [Concomitant]
  41. ISRADIPINE [Concomitant]

REACTIONS (1)
  - NEPHROGENIC SYSTEMIC FIBROSIS [None]
